FAERS Safety Report 5410007-3 (Version None)
Quarter: 2007Q3

REPORT INFORMATION
  Report Type: 
  Country: None (occurrence: None)
  Receive Date: 20070809
  Receipt Date: 20070807
  Transmission Date: 20080115
  Serious: Yes (Life-Threatening, Hospitalization, Disabling, Other)
  Sender: FDA-Public Use
  Company Number: IT-BRISTOL-MYERS SQUIBB COMPANY-13446083

PATIENT
  Age: 81 Year
  Sex: Female
  Weight: 75 kg

DRUGS (6)
  1. IRBESARTAN [Suspect]
     Indication: HYPERTENSION
     Dates: start: 20050903
  2. BLINDED: PLACEBO [Suspect]
     Indication: HYPERTENSION
     Dates: start: 20050903
  3. CLOPIDOGREL BISULFATE [Suspect]
     Indication: PROPHYLAXIS
     Dates: start: 20050903
  4. ASPIRIN [Suspect]
     Indication: PROPHYLAXIS
     Route: 048
     Dates: start: 20050903
  5. CORTICOSTEROID [Concomitant]
  6. ASPIRIN [Concomitant]

REACTIONS (2)
  - BRAIN NEOPLASM MALIGNANT [None]
  - HAEMORRHAGIC STROKE [None]
